FAERS Safety Report 7166872-5 (Version None)
Quarter: 2010Q4

REPORT INFORMATION
  Report Type: 
  Country: None (occurrence: None)
  Receive Date: 20101213
  Receipt Date: 20101213
  Transmission Date: 20110411
  Serious: Yes (Hospitalization)
  Sender: FDA-Public Use
  Company Number: None

PATIENT
  Age: 58 Year
  Sex: Female
  Weight: 72.5755 kg

DRUGS (1)
  1. PROPOXYPHENE HCL AND ACETAMINOPHEN [Suspect]
     Indication: EAR INFECTION
     Dosage: 1 6 HRS
     Dates: start: 20101001, end: 20101008

REACTIONS (2)
  - CHEST PAIN [None]
  - HYPOAESTHESIA [None]
